FAERS Safety Report 7247802-4 (Version None)
Quarter: 2011Q1

REPORT INFORMATION
  Report Type: 
  Country: None (occurrence: None)
  Receive Date: 20110127
  Receipt Date: 20110117
  Transmission Date: 20110831
  Serious: Yes (Death, Hospitalization, Other)
  Sender: FDA-Public Use
  Company Number: NL-GENZYME-CLOF-1001319

PATIENT
  Sex: Female
  Weight: 58 kg

DRUGS (15)
  1. EVOLTRA [Suspect]
     Indication: ACUTE MYELOID LEUKAEMIA
     Dosage: 24 MG, QDX5
     Route: 042
     Dates: start: 20101012, end: 20101016
  2. EVOLTRA [Suspect]
     Dosage: 24 MG, QDX5
     Route: 042
     Dates: start: 20100907, end: 20100911
  3. IDARUBICIN [Concomitant]
     Indication: ACUTE MYELOID LEUKAEMIA
     Dosage: 20 MG, QD
     Route: 042
     Dates: start: 20100907, end: 20100909
  4. IMIPENEM [Concomitant]
     Indication: CAECITIS
     Dosage: 500 MG, TID
     Route: 042
     Dates: start: 20101020, end: 20101112
  5. CIPROXIN [Concomitant]
     Indication: PROPHYLAXIS
     Dosage: 500 MG, BID
     Route: 042
     Dates: start: 20101012, end: 20101113
  6. ANTIEMETICS AND ANTINAUSEANTS [Concomitant]
     Indication: PROPHYLAXIS
     Route: 065
  7. AMSACRINE [Suspect]
     Indication: ACUTE MYELOID LEUKAEMIA
     Dosage: 195 MG, QD
     Route: 042
     Dates: start: 20101012, end: 20101018
  8. CYTARABINE [Suspect]
     Indication: ACUTE MYELOID LEUKAEMIA
     Dosage: 1600 MG, UNK
     Route: 042
     Dates: start: 20101012, end: 20101018
  9. CYTARABINE [Suspect]
     Dosage: 330 MG, QD
     Route: 042
     Dates: start: 20100907, end: 20100913
  10. ALLOPURINOL [Concomitant]
     Indication: PROPHYLAXIS
     Dosage: 300 MG, QD
     Route: 065
  11. COLISTIN [Concomitant]
     Indication: PROPHYLAXIS
     Dosage: 200 MG, UNK
     Route: 042
     Dates: start: 20101012, end: 20101113
  12. RASBURICASE [Concomitant]
     Indication: PROPHYLAXIS
     Dosage: UNK
     Route: 065
  13. FLUCONAZOLE [Concomitant]
     Indication: PROPHYLAXIS
     Dosage: 400 MG, BID
     Route: 042
     Dates: start: 20101012, end: 20101113
  14. AMBISOME [Concomitant]
     Indication: PROPHYLAXIS
  15. GRANISETRON HCL [Concomitant]
     Indication: PRODUCT USED FOR UNKNOWN INDICATION
     Dosage: 1 MG, BID
     Route: 042
     Dates: start: 20100907, end: 20100913

REACTIONS (4)
  - CAECITIS [None]
  - MULTI-ORGAN FAILURE [None]
  - RENAL FAILURE [None]
  - GASTROINTESTINAL NECROSIS [None]
